FAERS Safety Report 16848009 (Version 1)
Quarter: 2019Q3

REPORT INFORMATION
  Report Type: Report from Study
  Country: None (occurrence: BR)
  Receive Date: 20190924
  Receipt Date: 20190924
  Transmission Date: 20191005
  Serious: Yes (Other)
  Sender: FDA-Public Use
  Company Number: BR-ABBVIE-19P-020-2936052-00

PATIENT
  Sex: Male

DRUGS (13)
  1. DEPAKOTE ER [Suspect]
     Active Substance: DIVALPROEX SODIUM
     Indication: SEIZURE
     Dosage: LOWER DOSE, INCREASED TO 3 TABLETS A DAY
     Route: 048
  2. DEPAKOTE ER [Suspect]
     Active Substance: DIVALPROEX SODIUM
     Indication: AGITATION
     Dosage: DAILY DOSE: 750MG;MORNING/ AFTERNOON/ NIGHT
     Route: 048
  3. AAS [Concomitant]
     Active Substance: ASPIRIN
     Indication: ANTICOAGULANT THERAPY
     Dosage: AT LUNCH; WITH LOSARTAN
     Route: 048
  4. PHENYTOIN. [Concomitant]
     Active Substance: PHENYTOIN
     Indication: PRODUCT USED FOR UNKNOWN INDICATION
  5. HYDROCHLOROTHIAZIDE. [Concomitant]
     Active Substance: HYDROCHLOROTHIAZIDE
     Indication: BLOOD PRESSURE ABNORMAL
     Dosage: WITH LOSARTAN
     Route: 048
  6. HEIMER [Concomitant]
     Active Substance: MEMANTINE HYDROCHLORIDE
     Indication: PRODUCT USED FOR UNKNOWN INDICATION
     Dosage: DAILY DOSE:20MG;STARTED ^TOGETHER WITH THE OTHER MEDICATIONS^ (SIC)
     Route: 048
  7. PHENYTOIN. [Concomitant]
     Active Substance: PHENYTOIN
     Indication: ANXIETY
  8. PHENYTOIN. [Concomitant]
     Active Substance: PHENYTOIN
     Indication: NERVOUSNESS
     Dosage: DAILY DOSE:300MG;STARTED ^WHEN HE STARTED TAKING THE OTHER MEDICATIONS^ (SIC)
     Route: 048
  9. QUETROS [Concomitant]
     Active Substance: QUETIAPINE
     Indication: NERVOUS SYSTEM DISORDER
     Dosage: MORNING/ AFTERNOON/ NIGHT
     Route: 048
  10. HYDROCHLOROTHIAZIDE. [Concomitant]
     Active Substance: HYDROCHLOROTHIAZIDE
     Indication: DIURETIC THERAPY
  11. NIFEDIPINE. [Concomitant]
     Active Substance: NIFEDIPINE
     Indication: BLOOD PRESSURE ABNORMAL
     Dosage: DAILY DOSE:4 TABLETS;MORNING/ NIGHT; WITH LOSARTAN
     Route: 048
  12. FRISIUM [Concomitant]
     Active Substance: CLOBAZAM
     Indication: SLEEP DISORDER THERAPY
     Dosage: AT NIGHT
     Route: 048
  13. LOSARTAN. [Concomitant]
     Active Substance: LOSARTAN
     Indication: BLOOD PRESSURE MANAGEMENT
     Dosage: DAILY DOSE:100MG;MORNING/ NIGHT
     Route: 048

REACTIONS (3)
  - Inappropriate schedule of product administration [Unknown]
  - Seizure [Unknown]
  - Cerebral disorder [Unknown]
